FAERS Safety Report 13023012 (Version 10)
Quarter: 2018Q2

REPORT INFORMATION
  Report Type: Report from Study
  Country: BR (occurrence: BR)
  Receive Date: 20161213
  Receipt Date: 20180529
  Transmission Date: 20180711
  Serious: Yes (Other)
  Sender: FDA-Public Use
  Company Number: BR-JNJFOC-20160919383

PATIENT
  Sex: Female
  Weight: 66 kg

DRUGS (13)
  1. BEFOLIK [Concomitant]
     Route: 065
  2. SERTRALINE [Concomitant]
     Active Substance: SERTRALINE HYDROCHLORIDE
     Route: 065
  3. STELARA [Suspect]
     Active Substance: USTEKINUMAB
     Indication: PSORIASIS
     Route: 058
     Dates: start: 20150325
  4. AMYTRIL [Concomitant]
     Active Substance: AMITRIPTYLINE HYDROCHLORIDE
     Route: 065
  5. CEBRILIN [Concomitant]
     Active Substance: PAROXETINE HYDROCHLORIDE
     Route: 065
  6. TECNOMET [Concomitant]
     Active Substance: METHOTREXATE
     Route: 065
  7. VITAMIN D [Concomitant]
     Active Substance: CHOLECALCIFEROL
     Route: 065
  8. VITAMIN B [Concomitant]
     Active Substance: VITAMIN B
     Route: 065
  9. DEPURA [Concomitant]
     Active Substance: CHOLECALCIFEROL
     Route: 065
  10. ZOLOFT [Concomitant]
     Active Substance: SERTRALINE HYDROCHLORIDE
     Route: 065
  11. ATENOLOL. [Concomitant]
     Active Substance: ATENOLOL
     Route: 065
  12. ARTRODAR [Concomitant]
     Active Substance: DIACEREIN
     Route: 065
  13. STELARA [Suspect]
     Active Substance: USTEKINUMAB
     Indication: PSORIASIS
     Route: 058
     Dates: start: 20140325

REACTIONS (20)
  - Rheumatoid arthritis [Not Recovered/Not Resolved]
  - Nausea [Unknown]
  - Dyspepsia [Unknown]
  - Menorrhagia [Unknown]
  - Anxiety [Unknown]
  - Candida infection [Not Recovered/Not Resolved]
  - Osteoarthritis [Not Recovered/Not Resolved]
  - Rhinitis [Unknown]
  - Drug dose omission [Unknown]
  - Radiculotomy [Unknown]
  - Skin odour abnormal [Recovered/Resolved]
  - Pain in extremity [Unknown]
  - Psoriasis [Not Recovered/Not Resolved]
  - Rash [Unknown]
  - Drug ineffective [Unknown]
  - Vitamin B complex deficiency [Unknown]
  - Systemic lupus erythematosus [Unknown]
  - Vaginal disorder [Unknown]
  - Diarrhoea [Unknown]
  - Migraine [Unknown]

NARRATIVE: CASE EVENT DATE: 2016
